FAERS Safety Report 5352513-6 (Version None)
Quarter: 2007Q2

REPORT INFORMATION
  Report Type: 
  Country: None (occurrence: None)
  Receive Date: 20070611
  Receipt Date: 20070607
  Transmission Date: 20071010
  Serious: Yes (Death, Hospitalization)
  Sender: FDA-Public Use
  Company Number: HQWYE158108MAR07

PATIENT
  Sex: Male

DRUGS (11)
  1. CORDARONE [Suspect]
     Indication: ATRIAL FIBRILLATION
     Route: 065
  2. AMILORIDE HYDROCHLORIDE [Concomitant]
     Route: 065
     Dates: end: 20070201
  3. AMILORIDE HYDROCHLORIDE [Concomitant]
     Route: 065
     Dates: start: 20070216
  4. PINDOLOL [Concomitant]
     Route: 065
  5. KALIUM RETARD [Concomitant]
     Indication: DIARRHOEA
     Route: 065
  6. SIMVASTATIN [Concomitant]
     Route: 065
  7. PROSCAR [Concomitant]
     Route: 065
  8. PROPAVAN [Concomitant]
     Route: 065
  9. WARAN [Concomitant]
     Route: 065
  10. FUROSEMIDE [Concomitant]
     Route: 065
  11. COZAAR [Concomitant]
     Route: 065

REACTIONS (3)
  - CARDIAC FAILURE [None]
  - HYPOTHYROIDISM [None]
  - SUDDEN CARDIAC DEATH [None]
